FAERS Safety Report 7796370-7 (Version None)
Quarter: 2011Q4

REPORT INFORMATION
  Report Type: 
  Country: None (occurrence: None)
  Receive Date: 20111005
  Receipt Date: 20110927
  Transmission Date: 20120403
  Serious: Yes (Other)
  Sender: FDA-Public Use
  Company Number: US-BIOGENIDEC-2011BI036978

PATIENT
  Age: 57 Year
  Sex: Male

DRUGS (3)
  1. AVONEX [Suspect]
     Route: 030
     Dates: start: 20070418, end: 20080322
  2. AVONEX [Suspect]
     Route: 030
     Dates: start: 20080601, end: 20100107
  3. AVONEX [Suspect]
     Indication: MULTIPLE SCLEROSIS
     Route: 030
     Dates: start: 20100407, end: 20110401

REACTIONS (1)
  - BLADDER CANCER [None]
